FAERS Safety Report 16070011 (Version 1)
Quarter: 2019Q1

REPORT INFORMATION
  Report Type: Spontaneous
  Country: US (occurrence: US)
  Receive Date: 20190314
  Receipt Date: 20190314
  Transmission Date: 20190418
  Serious: No
  Sender: FDA-Public Use
  Company Number: US-009507513-1902USA011110

PATIENT
  Sex: Male

DRUGS (4)
  1. DULERA [Suspect]
     Active Substance: FORMOTEROL FUMARATE DIHYDRATE\MOMETASONE FUROATE
  2. ADVAIR HFA [Suspect]
     Active Substance: FLUTICASONE PROPIONATE\SALMETEROL XINAFOATE
  3. SINGULAIR [Suspect]
     Active Substance: MONTELUKAST SODIUM
     Route: 048
  4. PROVENTIL [Suspect]
     Active Substance: ALBUTEROL

REACTIONS (3)
  - Insomnia [Unknown]
  - Drug ineffective [Unknown]
  - Anxiety [Unknown]
